FAERS Safety Report 15983008 (Version 6)
Quarter: 2019Q3

REPORT INFORMATION
  Report Type: Spontaneous
  Country: FR (occurrence: FR)
  Receive Date: 20190219
  Receipt Date: 20190814
  Transmission Date: 20191004
  Serious: Yes (Other)
  Sender: FDA-Public Use
  Company Number: FR-ALLERGAN-1906446US

PATIENT
  Sex: Female
  Weight: 45 kg

DRUGS (5)
  1. MACROGOL [Concomitant]
     Active Substance: POLYETHYLENE GLYCOLS
     Indication: CONSTIPATION
     Dosage: UNK
  2. RESOLOR [Concomitant]
     Active Substance: PRUCALOPRIDE SUCCINATE
     Indication: CONSTIPATION
     Dosage: UNK
  3. CONSTELLA [Suspect]
     Active Substance: LINACLOTIDE
     Indication: CONSTIPATION
     Dosage: 290 MG, QAM
     Route: 048
     Dates: start: 201812, end: 20190629
  4. NORSET [Concomitant]
     Active Substance: MIRTAZAPINE
     Indication: PAIN
     Dosage: UNK
  5. DUPHALAC [Concomitant]
     Active Substance: LACTULOSE
     Indication: PAIN
     Dosage: UNK

REACTIONS (9)
  - Off label use [Unknown]
  - Open angle glaucoma [Unknown]
  - Raynaud^s phenomenon [Not Recovered/Not Resolved]
  - Drug ineffective [Unknown]
  - Hot flush [Not Recovered/Not Resolved]
  - Intestinal pseudo-obstruction [Unknown]
  - Weight increased [Not Recovered/Not Resolved]
  - Peripheral vascular disorder [Not Recovered/Not Resolved]
  - Oedema mucosal [Not Recovered/Not Resolved]

NARRATIVE: CASE EVENT DATE: 2000
